FAERS Safety Report 11258455 (Version 1)
Quarter: 2015Q3

REPORT INFORMATION
  Report Type: Spontaneous
  Country: US (occurrence: None)
  Receive Date: 20150709
  Receipt Date: 20150709
  Transmission Date: 20151125
  Serious: Yes (Life-Threatening)
  Sender: FDA-Public Use
  Company Number: None

PATIENT
  Age: 63 Year
  Sex: Female
  Weight: 55.9 kg

DRUGS (13)
  1. INSULIN DETERMIR (LEVEMIR) FLEXTOUCH PEN [Concomitant]
  2. INSULIN GLULISINE (APIDRA SOLOSTAR) [Concomitant]
  3. APIDRA [Concomitant]
     Active Substance: INSULIN GLULISINE
  4. DICLOFENAC EPOLAMINE PATCH (FLECTOR) [Concomitant]
  5. BYDUREON [Suspect]
     Active Substance: EXENATIDE
     Indication: TYPE 2 DIABETES MELLITUS
     Route: 058
     Dates: start: 2012, end: 2014
  6. SYNTHROID [Concomitant]
     Active Substance: LEVOTHYROXINE SODIUM
  7. METFORMIN [Concomitant]
     Active Substance: METFORMIN HYDROCHLORIDE
  8. BYETTA [Suspect]
     Active Substance: EXENATIDE
     Route: 058
     Dates: start: 2007, end: 2012
  9. LEVEMIR [Concomitant]
     Active Substance: INSULIN DETEMIR
  10. LORZEPAM (ATIVAN) [Concomitant]
  11. ZOFRAN [Concomitant]
     Active Substance: ONDANSETRON HYDROCHLORIDE
  12. HYDROCODONE BITARTRATE AND ACETAMINOPHEN [Concomitant]
     Active Substance: ACETAMINOPHEN\HYDROCODONE BITARTRATE
  13. METHOCARBAMOL (ROBAXIN) [Concomitant]

REACTIONS (1)
  - Pancreatic carcinoma [None]

NARRATIVE: CASE EVENT DATE: 20150409
